FAERS Safety Report 10288248 (Version 2)
Quarter: 2014Q3

REPORT INFORMATION
  Report Type: Report from Study
  Country: AR (occurrence: AR)
  Receive Date: 20140709
  Receipt Date: 20140808
  Transmission Date: 20150326
  Serious: Yes (Other)
  Sender: FDA-Public Use
  Company Number: PHHY2014AR084546

PATIENT
  Sex: Female

DRUGS (2)
  1. DIOVAN [Suspect]
     Active Substance: VALSARTAN
     Indication: HYPERTENSION
     Dosage: 1 DF, QD
     Route: 048
  2. DIOVAN [Suspect]
     Active Substance: VALSARTAN
     Dosage: UNK (SPLIT THE MEDICATION), UNK
     Route: 048

REACTIONS (7)
  - Eye injury [Recovering/Resolving]
  - Eye irritation [Recovering/Resolving]
  - Fall [Recovering/Resolving]
  - Haematoma [Recovering/Resolving]
  - Cataract [Not Recovered/Not Resolved]
  - Visual impairment [Not Recovered/Not Resolved]
  - Wrong technique in drug usage process [Unknown]
